FAERS Safety Report 9562460 (Version 2)
Quarter: 2013Q3

REPORT INFORMATION
  Report Type: Report from Study
  Country: US (occurrence: US)
  Receive Date: 20130927
  Receipt Date: 20130927
  Transmission Date: 20140515
  Serious: Yes (Hospitalization)
  Sender: FDA-Public Use
  Company Number: US-ABBVIE-13P-163-1061532-00

PATIENT
  Age: 56 Year
  Sex: Female
  Weight: 81 kg

DRUGS (10)
  1. HUMIRA [Suspect]
     Indication: PSORIASIS
     Route: 058
     Dates: start: 201206
  2. HUMIRA [Suspect]
     Route: 058
     Dates: start: 20120815
  3. METHOTREXATE [Concomitant]
     Indication: PSORIATIC ARTHROPATHY
     Dates: start: 20110811
  4. CYMBALTA [Concomitant]
     Indication: FIBROMYALGIA
     Route: 048
  5. PRILOSEC [Concomitant]
     Indication: GASTROOESOPHAGEAL REFLUX DISEASE
     Route: 048
     Dates: start: 201208
  6. PROPANOLOL HYDROCHLORIDE [Concomitant]
     Indication: HYPERTENSION
     Route: 048
     Dates: start: 2008
  7. MESALAZINE [Concomitant]
     Indication: CROHN^S DISEASE
     Dates: start: 201204
  8. NORVASC [Concomitant]
     Indication: HYPERTENSION
     Dates: start: 2011
  9. AMBIEN [Concomitant]
     Indication: INSOMNIA
     Dates: start: 20111215
  10. ZOCOR [Concomitant]
     Indication: HYPERLIPIDAEMIA
     Dates: start: 201204

REACTIONS (1)
  - Cerebrovascular accident [Recovered/Resolved]
